FAERS Safety Report 18310803 (Version 1)
Quarter: 2020Q3

REPORT INFORMATION
  Report Type: Spontaneous
  Country: CO (occurrence: CO)
  Receive Date: 20200925
  Receipt Date: 20200925
  Transmission Date: 20201103
  Serious: Yes (Hospitalization)
  Sender: FDA-Public Use
  Company Number: CO-ROCHE-2684008

PATIENT
  Age: 52 Year
  Sex: Female

DRUGS (1)
  1. ACTEMRA [Suspect]
     Active Substance: TOCILIZUMAB
     Indication: RHEUMATOID ARTHRITIS
     Dosage: FREQUENCY NOT REPORTED
     Route: 058
     Dates: start: 20191016

REACTIONS (1)
  - Hemianaesthesia [Unknown]

NARRATIVE: CASE EVENT DATE: 20200921
